FAERS Safety Report 7741182-3 (Version None)
Quarter: 2011Q3

REPORT INFORMATION
  Report Type: 
  Country: None (occurrence: None)
  Receive Date: 20110909
  Receipt Date: 20110829
  Transmission Date: 20111222
  Serious: Yes (Other)
  Sender: FDA-Public Use
  Company Number: CA-ELI_LILLY_AND_COMPANY-CA201108008454

PATIENT
  Sex: Male
  Weight: 115 kg

DRUGS (21)
  1. ZYPREXA [Suspect]
     Dosage: 50 MG, QD
  2. VALPROATE SODIUM [Concomitant]
  3. ZYPREXA ZYDIS [Suspect]
     Indication: SCHIZOPHRENIA, PARANOID TYPE
     Dosage: 10 MG, SINGLE
  4. CLOZAPINE [Concomitant]
  5. TRILAFON [Concomitant]
  6. ZYPREXA [Suspect]
     Dosage: 12 MG, UNKNOWN
  7. CLONAZEPAM [Concomitant]
  8. ZYPREXA ZYDIS [Suspect]
     Dosage: 20 MG, SINGLE
  9. COGENTIN [Concomitant]
  10. SEROQUEL [Concomitant]
  11. ZYPREXA [Suspect]
     Dosage: 15 MG, EACH EVENING
  12. EFFEXOR [Concomitant]
  13. HALDOL [Concomitant]
  14. NEURONTIN [Concomitant]
  15. ZYPREXA [Suspect]
     Dosage: 20 MG, EACH EVENING
  16. ZYPREXA [Suspect]
     Dosage: 17.5 MG, EACH EVENING
  17. RISPERDAL [Concomitant]
  18. ZOLOFT [Concomitant]
  19. LITHIUM [Concomitant]
  20. ZYPREXA [Suspect]
     Indication: SCHIZOPHRENIA, PARANOID TYPE
     Dosage: 5 MG, EACH EVENING
  21. ATIVAN [Concomitant]

REACTIONS (11)
  - HEPATIC STEATOSIS [None]
  - OVERDOSE [None]
  - HYPERGLYCAEMIA [None]
  - CONVULSION [None]
  - ANAEMIA [None]
  - ASPARTATE AMINOTRANSFERASE INCREASED [None]
  - DIABETES MELLITUS [None]
  - DYSLIPIDAEMIA [None]
  - WEIGHT INCREASED [None]
  - HYPERTENSION [None]
  - ALANINE AMINOTRANSFERASE INCREASED [None]
